FAERS Safety Report 8113754-8 (Version None)
Quarter: 2012Q1

REPORT INFORMATION
  Report Type: 
  Country: None (occurrence: None)
  Receive Date: 20120203
  Receipt Date: 20120130
  Transmission Date: 20120608
  Serious: Yes (Death, Hospitalization)
  Sender: FDA-Public Use
  Company Number: GB-ABBOTT-11P-167-0870723-00

PATIENT
  Sex: Male

DRUGS (4)
  1. HUMIRA [Suspect]
     Indication: PRODUCT USED FOR UNKNOWN INDICATION
     Route: 058
     Dates: start: 20111005
  2. HUMIRA [Suspect]
     Route: 058
     Dates: start: 20111027
  3. METHADONE HCL [Suspect]
     Indication: PRODUCT USED FOR UNKNOWN INDICATION
     Route: 048
     Dates: start: 20111026
  4. METHADONE HCL [Suspect]
     Indication: PAIN

REACTIONS (5)
  - TOXICITY TO VARIOUS AGENTS [None]
  - PYREXIA [None]
  - OVERDOSE [None]
  - HOSPITALISATION [None]
  - PAIN [None]
